FAERS Safety Report 13909460 (Version 1)
Quarter: 2017Q3

REPORT INFORMATION
  Report Type: Spontaneous
  Country: US (occurrence: US)
  Receive Date: 20170828
  Receipt Date: 20170828
  Transmission Date: 20171127
  Serious: Yes (Hospitalization, Other)
  Sender: FDA-Public Use
  Company Number: US-ACCORD-057584

PATIENT
  Age: 6 Year
  Sex: Male

DRUGS (3)
  1. MERCAPTOPURINE/MERCAPTOPURINE ANHYDROUS [Suspect]
     Active Substance: MERCAPTOPURINE
     Indication: ACUTE LYMPHOCYTIC LEUKAEMIA
     Dosage: INITIALLY REDUCED BY 50%
  2. PENTAMIDINE [Concomitant]
     Active Substance: PENTAMIDINE
     Indication: ANTIFUNGAL PROPHYLAXIS
  3. METHOTREXATE. [Suspect]
     Active Substance: METHOTREXATE
     Indication: ACUTE LYMPHOCYTIC LEUKAEMIA
     Dosage: INITIALLY REDUCED BY 50%

REACTIONS (6)
  - Pneumonia [None]
  - Pancytopenia [Recovered/Resolved]
  - Cytomegalovirus infection [Recovered/Resolved]
  - Atelectasis [None]
  - Hypoxia [Recovered/Resolved]
  - Histiocytosis haematophagic [Recovered/Resolved]
